FAERS Safety Report 5712582-8 (Version None)
Quarter: 2008Q2

REPORT INFORMATION
  Report Type: 
  Country: None (occurrence: None)
  Receive Date: 20080422
  Receipt Date: 20080414
  Transmission Date: 20081010
  Serious: Yes (Other)
  Sender: FDA-Public Use
  Company Number: ES-ELI_LILLY_AND_COMPANY-ES200804003769

PATIENT
  Age: 65 Year
  Sex: Female

DRUGS (3)
  1. FORTEO [Suspect]
     Indication: OSTEOPOROSIS
     Dosage: 20 UG, UNKNOWN
     Route: 058
     Dates: start: 20080301, end: 20080301
  2. CALCIUM [Concomitant]
  3. CALCITONIN [Concomitant]

REACTIONS (7)
  - DIZZINESS [None]
  - DYSARTHRIA [None]
  - GAIT DISTURBANCE [None]
  - GASTROINTESTINAL MOTILITY DISORDER [None]
  - LOSS OF CONSCIOUSNESS [None]
  - VISION BLURRED [None]
  - VOMITING [None]
